FAERS Safety Report 6239136-1 (Version None)
Quarter: 2009Q2

REPORT INFORMATION
  Report Type: 
  Country: None (occurrence: None)
  Receive Date: 20090618
  Receipt Date: 20090608
  Transmission Date: 20091009
  Serious: Yes (Other)
  Sender: FDA-Public Use
  Company Number: CHPA2009US13265

PATIENT
  Age: 17 Year
  Sex: Male

DRUGS (1)
  1. DEXTROMETHORPHAN HYDROBROMIDE [Suspect]

REACTIONS (4)
  - DRUG ABUSE [None]
  - MUSCULAR WEAKNESS [None]
  - MYELOPATHY [None]
  - NEUROTOXICITY [None]
